FAERS Safety Report 8907215 (Version 2)
Quarter: 2013Q1

REPORT INFORMATION
  Report Type: Spontaneous
  Country: US (occurrence: US)
  Receive Date: 20121114
  Receipt Date: 20130218
  Transmission Date: 20140127
  Serious: No
  Sender: FDA-Public Use
  Company Number: US-009507513-1211USA004827

PATIENT
  Sex: Female

DRUGS (1)
  1. AZASITE [Suspect]
     Dosage: 1 DROP IN EACH EYE, QD
     Route: 047
     Dates: start: 20110616, end: 20110715

REACTIONS (3)
  - Expired drug administered [Unknown]
  - No adverse event [Unknown]
  - Incorrect drug administration duration [Unknown]
